FAERS Safety Report 7051345-0 (Version None)
Quarter: 2010Q4

REPORT INFORMATION
  Report Type: 
  Country: None (occurrence: None)
  Receive Date: 20101018
  Receipt Date: 20101018
  Transmission Date: 20110411
  Serious: Yes (Other)
  Sender: FDA-Public Use
  Company Number: None

PATIENT
  Sex: Male
  Weight: 108.8633 kg

DRUGS (1)
  1. OMEPRAZOLE DR 40 MG [Suspect]
     Indication: GASTROOESOPHAGEAL REFLUX DISEASE
     Dosage: 40 MG DAILY
     Dates: start: 20101003, end: 20101006

REACTIONS (6)
  - CHILLS [None]
  - COUGH [None]
  - DISCOMFORT [None]
  - PRURITUS [None]
  - PYREXIA [None]
  - RASH GENERALISED [None]
